FAERS Safety Report 9165414 (Version 1)
Quarter: 2013Q1

REPORT INFORMATION
  Report Type: Spontaneous
  Country: KR (occurrence: None)
  Receive Date: 20130301
  Receipt Date: 20130301
  Transmission Date: 20140127
  Serious: Yes (Other)
  Sender: FDA-Public Use
  Company Number: JP-2013-10425

PATIENT
  Age: 56 Year
  Sex: Male

DRUGS (1)
  1. OPC-13013 (CILOSTAZOL) TABLET [Suspect]
     Route: 048

REACTIONS (2)
  - Cerebral artery stenosis [None]
  - Condition aggravated [None]
